FAERS Safety Report 4443523-1 (Version None)
Quarter: 2004Q3

REPORT INFORMATION
  Report Type: 
  Country: None (occurrence: None)
  Receive Date: 20040901
  Receipt Date: 20040823
  Transmission Date: 20050211
  Serious: Yes (Death)
  Sender: FDA-Public Use
  Company Number: B0343660A

PATIENT
  Sex: Female

DRUGS (3)
  1. NAVELBINE [Suspect]
     Indication: BREAST CANCER METASTATIC
     Dosage: SEE DOSAGE TEXT/
  2. CARBOPLATIN [Suspect]
     Indication: BREAST CANCER METASTATIC
     Dosage: SEE DOSAGE TEXT/
  3. CAPECITABINE (CAPECITABINE) [Suspect]
     Indication: BREAST CANCER METASTATIC
     Dosage: SEE DOSAGE TEXT/

REACTIONS (1)
  - RESPIRATORY FAILURE [None]
